FAERS Safety Report 4559425-6 (Version None)
Quarter: 2005Q1

REPORT INFORMATION
  Report Type: 
  Country: None (occurrence: None)
  Receive Date: 20050119
  Receipt Date: 20050105
  Transmission Date: 20050727
  Serious: Yes (Hospitalization)
  Sender: FDA-Public Use
  Company Number: 2004AP03179

PATIENT
  Age: 79 Year
  Sex: Male

DRUGS (9)
  1. CASODEX [Suspect]
     Indication: PROSTATE CANCER
     Dosage: 80 MG DAILY PO
     Route: 048
     Dates: start: 20021215, end: 20040615
  2. ZOLADEX [Suspect]
     Indication: PROSTATE CANCER
     Dosage: 3.6 MG Q4WK SQ
     Route: 058
     Dates: start: 20021216, end: 20040615
  3. ASPIRIN [Suspect]
     Indication: CEREBRAL INFARCTION
     Dosage: 100 MG DAILY PO
     Route: 048
     Dates: start: 20030201, end: 20040615
  4. CINALONG [Suspect]
     Indication: HYPERTENSION
     Dosage: 10 MG DAILY PO
     Route: 048
     Dates: start: 20030201, end: 20040701
  5. DIOVAN [Suspect]
     Indication: HYPERTENSION
     Dosage: 80 MG DAILY PO
     Route: 048
     Dates: start: 20021029, end: 20040701
  6. HARNAL [Suspect]
     Indication: BENIGN PROSTATIC HYPERPLASIA
     Dosage: 0.2 MG DAILY PO
     Route: 048
     Dates: start: 20021029, end: 20040615
  7. SALOBEL [Suspect]
     Indication: HYPERURICAEMIA
     Dosage: 100 MG DAILY PO
     Route: 048
     Dates: start: 20040120, end: 20040701
  8. SODIUM BICARBONATE [Suspect]
     Indication: ACIDOSIS
     Dosage: 3 G DAILY PO
     Route: 048
     Dates: start: 20040217, end: 20040615
  9. TAKEPRON [Suspect]
     Indication: GASTRIC ULCER
     Dosage: 15 MG DAILY PO
     Route: 048
     Dates: start: 20030422, end: 20040701

REACTIONS (11)
  - ACIDOSIS [None]
  - BLOOD PRESSURE DECREASED [None]
  - CEREBRAL INFARCTION [None]
  - GASTRIC ULCER [None]
  - GENERAL PHYSICAL HEALTH DETERIORATION [None]
  - HAEMODIALYSIS [None]
  - HYPERURICAEMIA [None]
  - PROSTATE CANCER [None]
  - PULMONARY FIBROSIS [None]
  - PULMONARY TUBERCULOSIS [None]
  - RENAL FAILURE [None]
